FAERS Safety Report 10936553 (Version 1)
Quarter: 2015Q1

REPORT INFORMATION
  Report Type: Spontaneous
  Country: US (occurrence: None)
  Receive Date: 20150129
  Receipt Date: 20150129
  Transmission Date: 20150721
  Serious: No
  Sender: FDA-Public Use
  Company Number: A-NJ2014-106896

PATIENT
  Age: 45 Year
  Sex: Female

DRUGS (3)
  1. ALLEGRA (FEXOFENADINE HYDROCHLORIDE) [Concomitant]
  2. NASONEX [Concomitant]
     Active Substance: MOMETASONE FUROATE
  3. OPSUMIT [Suspect]
     Active Substance: MACITENTAN
     Indication: COR PULMONALE CHRONIC
     Route: 048
     Dates: start: 20140804

REACTIONS (1)
  - Seasonal allergy [None]
